FAERS Safety Report 6581657-6 (Version None)
Quarter: 2010Q1

REPORT INFORMATION
  Report Type: 
  Country: None (occurrence: None)
  Receive Date: 20100215
  Receipt Date: 20100201
  Transmission Date: 20100710
  Serious: Yes (Hospitalization)
  Sender: FDA-Public Use
  Company Number: DE-MYLANLABS-2010S1001498

PATIENT
  Age: 85 Year
  Sex: Female
  Weight: 68 kg

DRUGS (2)
  1. METFORMIN HCL [Suspect]
     Route: 065
  2. DICLOFENAC [Suspect]
     Route: 065

REACTIONS (2)
  - DIABETIC NEPHROPATHY [None]
  - LACTIC ACIDOSIS [None]
